FAERS Safety Report 7058444-8 (Version None)
Quarter: 2010Q4

REPORT INFORMATION
  Report Type: 
  Country: None (occurrence: None)
  Receive Date: 20101022
  Receipt Date: 20101007
  Transmission Date: 20110411
  Serious: Yes (Other)
  Sender: FDA-Public Use
  Company Number: US-PFIZER INC-2010127849

PATIENT
  Sex: Female
  Weight: 58.957 kg

DRUGS (4)
  1. TOVIAZ [Suspect]
     Indication: HYPERTONIC BLADDER
     Dosage: 4 MG, 1X/DAY
     Route: 048
     Dates: start: 20100601, end: 20100901
  2. TOVIAZ [Suspect]
     Indication: CYSTITIS INTERSTITIAL
  3. TROSPIUM CHLORIDE [Concomitant]
     Indication: HYPERTONIC BLADDER
     Dosage: 60 MG, 1X/DAY
     Route: 048
  4. UROGESIC BLUE [Concomitant]
     Indication: HYPERTONIC BLADDER
     Dosage: UNK

REACTIONS (3)
  - ALOPECIA [None]
  - DRUG INEFFECTIVE [None]
  - VISION BLURRED [None]
